FAERS Safety Report 13861492 (Version 1)
Quarter: 2017Q3

REPORT INFORMATION
  Report Type: Spontaneous
  Country: CZ (occurrence: CZ)
  Receive Date: 20170811
  Receipt Date: 20170811
  Transmission Date: 20171127
  Serious: Yes (Life-Threatening, Other)
  Sender: FDA-Public Use
  Company Number: CZ-MYLANLABS-2017M1048002

PATIENT

DRUGS (4)
  1. BRUFEN [Suspect]
     Active Substance: IBUPROFEN
     Indication: SUICIDE ATTEMPT
     Dates: start: 20150601, end: 20150601
  2. LEXAURIN [Suspect]
     Active Substance: BROMAZEPAM
     Indication: SUICIDE ATTEMPT
     Dates: start: 20150601, end: 20150601
  3. ATARALGIN [Suspect]
     Active Substance: ACETAMINOPHEN\CAFFEINE\GUAIFENESIN
     Indication: SUICIDE ATTEMPT
     Dates: start: 20150601, end: 20150601
  4. STOPEX [Suspect]
     Active Substance: DEXTROMETHORPHAN HYDROBROMIDE
     Indication: SUICIDE ATTEMPT
     Dates: start: 20150601, end: 20170601

REACTIONS (3)
  - Overdose [Unknown]
  - Intentional product misuse [Unknown]
  - Suicide attempt [Unknown]

NARRATIVE: CASE EVENT DATE: 20150601
